FAERS Safety Report 26158641 (Version 3)
Quarter: 2025Q4

REPORT INFORMATION
  Report Type: Report from Study
  Country: US (occurrence: US)
  Receive Date: 20251215
  Receipt Date: 20251231
  Transmission Date: 20260118
  Serious: Yes (Other)
  Sender: SAREPTA THERAPEUTICS
  Company Number: US-SAREPTA THERAPEUTICS INC.-SRP2025-006697

PATIENT
  Age: 8 Year
  Sex: Male
  Weight: 25.2 kg

DRUGS (13)
  1. ELEVIDYS [Suspect]
     Active Substance: DELANDISTROGENE MOXEPARVOVEC-ROKL
     Indication: Duchenne muscular dystrophy
     Dosage: 240 MILLILITER, SINGLE
     Dates: start: 20251202, end: 20251202
  2. CHOLECALCIFEROL [Concomitant]
     Active Substance: CHOLECALCIFEROL
     Indication: Osteoporosis
     Dosage: 25 MICROGRAM, QD
     Route: 061
     Dates: start: 20250926
  3. LISINOPRIL [Concomitant]
     Active Substance: LISINOPRIL
     Indication: Cardiomyopathy
     Dosage: 5 MILLIGRAM, QD
     Route: 061
     Dates: start: 20250428
  4. ONDANSETRON [Concomitant]
     Active Substance: ONDANSETRON
     Indication: Prophylaxis of nausea and vomiting
     Dosage: 4 MILLIGRAM, QD
     Route: 061
     Dates: start: 20251107
  5. SIROLIMUS [Concomitant]
     Active Substance: SIROLIMUS
     Indication: Liver injury
     Dosage: 1 MILLIGRAM, QD
     Route: 061
     Dates: start: 20251106
  6. ACETAMINOPHEN [Concomitant]
     Active Substance: ACETAMINOPHEN
     Indication: Gene therapy
     Dosage: 243.2 MILLIGRAM, SINGLE
     Route: 061
     Dates: start: 20251202, end: 20251202
  7. DIPHENHYDRAMINE [Concomitant]
     Active Substance: DIPHENHYDRAMINE
     Indication: Gene therapy
     Dosage: 24.5 MILLIGRAM, SINGLE
     Route: 061
     Dates: start: 20251202, end: 20251202
  8. SULFAMETHOXAZOLE [Concomitant]
     Active Substance: SULFAMETHOXAZOLE
     Indication: Gene therapy
     Dosage: 400/80 MILLIGRAM, QD
     Route: 061
     Dates: start: 20251106
  9. POLYETHYLENE GLYCOLS [Concomitant]
     Active Substance: POLYETHYLENE GLYCOLS
     Indication: Constipation
     Dosage: 8.5 MILLIGRAM, QD
     Route: 061
     Dates: start: 20251205
  10. PREDNISOLONE [Concomitant]
     Active Substance: PREDNISOLONE
     Indication: Duchenne muscular dystrophy
     Dosage: 15 MILLIGRAM, QD
     Route: 061
     Dates: start: 20250926, end: 20251106
  11. PREDNISOLONE [Concomitant]
     Active Substance: PREDNISOLONE
     Indication: Gene therapy
     Dosage: 40 MILLIGRAM, QD
     Route: 061
     Dates: start: 20251106, end: 20251202
  12. PREDNISOLONE [Concomitant]
     Active Substance: PREDNISOLONE
     Dosage: 80 MILLIGRAM, QD
     Route: 061
     Dates: start: 20251202
  13. HYDROCORTISONE SODIUM SUCCINATE [Concomitant]
     Active Substance: HYDROCORTISONE SODIUM SUCCINATE
     Indication: Adrenal insufficiency
     Dosage: 100 MILLIGRAM, PRN
     Dates: start: 20250926

REACTIONS (6)
  - Pain in extremity [Recovered/Resolved]
  - Fall [Recovered/Resolved]
  - Weight bearing difficulty [Recovered/Resolved]
  - Diarrhoea [Recovered/Resolved]
  - Blood creatine phosphokinase increased [Recovered/Resolved]
  - Peripheral swelling [Recovered/Resolved]

NARRATIVE: CASE EVENT DATE: 20251202
